FAERS Safety Report 6020790-4 (Version None)
Quarter: 2008Q4

REPORT INFORMATION
  Report Type: 
  Country: None (occurrence: None)
  Receive Date: 20081229
  Receipt Date: 20081219
  Transmission Date: 20090506
  Serious: Yes (Hospitalization)
  Sender: FDA-Public Use
  Company Number: CN-BAYER-200833241GPV

PATIENT
  Age: 45 Year
  Sex: Male
  Weight: 68 kg

DRUGS (1)
  1. ULTRAVIST 370 [Suspect]
     Indication: ARTERIOGRAM CORONARY
     Dosage: TOTAL DAILY DOSE: 65 ML
     Route: 042
     Dates: start: 20081127, end: 20081127

REACTIONS (4)
  - AUTONOMIC NERVOUS SYSTEM IMBALANCE [None]
  - BLOOD PRESSURE FLUCTUATION [None]
  - CHILLS [None]
  - SHOCK [None]
